FAERS Safety Report 8415498-1 (Version None)
Quarter: 2012Q2

REPORT INFORMATION
  Report Type: 
  Country: None (occurrence: None)
  Receive Date: 20120606
  Receipt Date: 20120604
  Transmission Date: 20120825
  Serious: Yes (Other)
  Sender: FDA-Public Use
  Company Number: PHEH2011US00475

PATIENT
  Sex: Female

DRUGS (10)
  1. ZOMETA [Suspect]
     Dates: start: 20040101, end: 20080101
  2. ETHAMBUTOL HYDROCHLORIDE [Concomitant]
     Dosage: 400 MG,
  3. SYNTHROID [Concomitant]
     Dosage: 1 MG,
  4. CALCITRIOL [Concomitant]
  5. SYMBICORT [Concomitant]
  6. XOPENEX HFA [Concomitant]
  7. METRONIDAZOLE [Concomitant]
     Dosage: 500 MG
  8. AZITHROMYCIN [Concomitant]
     Dosage: 250 MG,
  9. ESTRING [Concomitant]
     Dosage: 2 MG, Q3MO
  10. CLINDAMYCIN [Concomitant]
     Dosage: 300 MG

REACTIONS (17)
  - OSTEONECROSIS OF JAW [None]
  - BLOOD CHOLESTEROL INCREASED [None]
  - SPINAL CORD INJURY [None]
  - CONVULSION [None]
  - NECK PAIN [None]
  - BREAST CANCER [None]
  - INJURY [None]
  - INFECTION [None]
  - EMOTIONAL DISTRESS [None]
  - PRIMARY SEQUESTRUM [None]
  - HYPOTENSION [None]
  - ANXIETY [None]
  - PAIN [None]
  - DEFORMITY [None]
  - EXPOSED BONE IN JAW [None]
  - THYROID DISORDER [None]
  - PHYSICAL DISABILITY [None]
